FAERS Safety Report 8921357 (Version 1)
Quarter: 2012Q4

REPORT INFORMATION
  Report Type: 
  Country: PL (occurrence: PL)
  Receive Date: 20121122
  Receipt Date: 20121122
  Transmission Date: 20130627
  Serious: Yes (Hospitalization, Other)
  Sender: FDA-Public Use
  Company Number: PL-BRISTOL-MYERS SQUIBB COMPANY-16935587

PATIENT
  Age: 70 Year
  Sex: Female

DRUGS (9)
  1. ABILIFY [Suspect]
     Indication: SCHIZOPHRENIA
     Route: 048
     Dates: start: 20120624, end: 20120801
  2. DONEPEZIL [Suspect]
     Dosage: Tab
  3. POLOCARD [Concomitant]
     Dosage: Polocard tabs
  4. SIMVASTEROL [Concomitant]
     Dosage: Simvasterol tabs
  5. PANTOPRAZOLE [Concomitant]
     Dosage: Pantoprazole tabs
  6. KALIPOZ [Concomitant]
     Dosage: Kalipoz tabs
  7. TERTENSIF [Concomitant]
     Dosage: Tertensif tabs
  8. ALPRAZOLAM [Concomitant]
     Dosage: Alprazolam tabs
  9. OLANZAPINE [Concomitant]

REACTIONS (3)
  - Neuroleptic malignant syndrome [Not Recovered/Not Resolved]
  - Urinary tract infection [Not Recovered/Not Resolved]
  - Escherichia urinary tract infection [None]
